FAERS Safety Report 5467177-0 (Version None)
Quarter: 2007Q3

REPORT INFORMATION
  Report Type: 
  Country: None (occurrence: None)
  Receive Date: 20070925
  Receipt Date: 20070913
  Transmission Date: 20080115
  Serious: Yes (Congenital Anomaly)
  Sender: FDA-Public Use
  Company Number: US-ROCHE-513191

PATIENT
  Sex: Female
  Weight: 0.9 kg

DRUGS (9)
  1. SAQUINAVIR [Suspect]
     Indication: DRUG USE FOR UNKNOWN INDICATION
  2. DDC [Suspect]
     Indication: DRUG USE FOR UNKNOWN INDICATION
  3. FUZEON [Suspect]
     Indication: DRUG USE FOR UNKNOWN INDICATION
  4. NELFINAVIR MESILATE [Suspect]
     Indication: HIV INFECTION
  5. ABACAVIR [Suspect]
     Indication: DRUG USE FOR UNKNOWN INDICATION
  6. DIDANOSINE [Suspect]
     Indication: DRUG USE FOR UNKNOWN INDICATION
  7. 3TC [Suspect]
     Indication: DRUG USE FOR UNKNOWN INDICATION
  8. NEVIRAPINE [Suspect]
     Indication: DRUG USE FOR UNKNOWN INDICATION
  9. AZT [Suspect]
     Indication: DRUG USE FOR UNKNOWN INDICATION

REACTIONS (1)
  - JOINT DISLOCATION [None]
